FAERS Safety Report 12924213 (Version 2)
Quarter: 2017Q1

REPORT INFORMATION
  Report Type: Spontaneous
  Country: US (occurrence: US)
  Receive Date: 20161109
  Receipt Date: 20170118
  Transmission Date: 20170428
  Serious: No
  Sender: FDA-Public Use
  Company Number: US-NORTHSTAR HEALTHCARE HOLDINGS-US-2016NSR000701

PATIENT

DRUGS (1)
  1. ALLOPURINOL. [Suspect]
     Active Substance: ALLOPURINOL
     Indication: GOUT
     Dosage: 100 MG [DAILY]
     Route: 048
     Dates: start: 20150828

REACTIONS (3)
  - Stomatitis [Unknown]
  - Product odour abnormal [Unknown]
  - Eructation [Unknown]

NARRATIVE: CASE EVENT DATE: 2015
